FAERS Safety Report 10120986 (Version 1)
Quarter: 2014Q2

REPORT INFORMATION
  Report Type: Spontaneous
  Country: FR (occurrence: FR)
  Receive Date: 20140425
  Receipt Date: 20140425
  Transmission Date: 20141212
  Serious: Yes (Hospitalization)
  Sender: FDA-Public Use
  Company Number: FR-GLAXOSMITHKLINE-B0971720A

PATIENT
  Age: 14 Year
  Sex: Female
  Weight: 50.5 kg

DRUGS (2)
  1. ZOVIRAX [Suspect]
     Indication: HERPES ZOSTER MENINGOENCEPHALITIS
     Dosage: 700MG THREE TIMES PER DAY
     Route: 042
     Dates: start: 20140219
  2. PARACETAMOL [Concomitant]
     Indication: PAIN
     Dosage: 500MG FOUR TIMES PER DAY
     Route: 048
     Dates: start: 20140218

REACTIONS (6)
  - Skin necrosis [Recovering/Resolving]
  - Extravasation [Recovering/Resolving]
  - Oedema peripheral [Recovering/Resolving]
  - Pain in extremity [Recovering/Resolving]
  - Blister [Recovering/Resolving]
  - Erythema [Recovering/Resolving]
